FAERS Safety Report 13592425 (Version 1)
Quarter: 2017Q2

REPORT INFORMATION
  Report Type: Report from Study
  Country: CA (occurrence: CA)
  Receive Date: 20170530
  Receipt Date: 20170530
  Transmission Date: 20170830
  Serious: Yes (Other)
  Sender: FDA-Public Use
  Company Number: CA-JNJFOC-20170506252

PATIENT
  Age: 60 Year
  Sex: Female
  Weight: 96 kg

DRUGS (2)
  1. REMICADE [Suspect]
     Active Substance: INFLIXIMAB
     Indication: COLITIS ULCERATIVE
     Route: 042
     Dates: start: 20170327
  2. REMICADE [Suspect]
     Active Substance: INFLIXIMAB
     Indication: COLITIS ULCERATIVE
     Dosage: INITIATED WITH INDUCTION DOSE OF 0,2 AND 6 WEEKS.
     Route: 042

REACTIONS (4)
  - Drug effect decreased [Unknown]
  - Diarrhoea [Unknown]
  - Rash [Unknown]
  - Breast prosthesis implantation [Unknown]

NARRATIVE: CASE EVENT DATE: 20170428
